FAERS Safety Report 7891773-4 (Version None)
Quarter: 2011Q4

REPORT INFORMATION
  Report Type: 
  Country: None (occurrence: None)
  Receive Date: 20111103
  Receipt Date: 20110810
  Transmission Date: 20120403
  Serious: No
  Sender: FDA-Public Use
  Company Number: US-AMGEN-USASP2011040589

PATIENT
  Sex: Female
  Weight: 63.492 kg

DRUGS (16)
  1. FLUTICASONE PROPIONATE [Concomitant]
     Dosage: 50 MUG, UNK
  2. NAPROXEN [Concomitant]
     Dosage: 275 MG, UNK
  3. LOVAZA [Concomitant]
     Dosage: 1 MG, UNK
  4. CALCIUM +D                         /00188401/ [Concomitant]
     Dosage: UNK
  5. PROTONIX [Concomitant]
     Dosage: UNK
  6. FLAXSEED OIL [Concomitant]
     Dosage: 1000 MG, UNK
  7. FENOFIBRATE [Concomitant]
     Dosage: 54 MG, UNK
  8. ACETAMINOPHEN AND HYDROCODONE BITARTRATE [Concomitant]
     Dosage: 500 MG, UNK
  9. VITAMIN B12                        /00056201/ [Concomitant]
     Dosage: 500 MUG, UNK
  10. CINNAMON                           /01647501/ [Concomitant]
     Dosage: 500 MG, UNK
  11. ENBREL [Suspect]
     Indication: PRODUCT USED FOR UNKNOWN INDICATION
     Dosage: 50 MG, QWK
  12. VITAMIN D [Concomitant]
     Dosage: 50 UNK, UNK
  13. MULTIVITAMIN                       /00097801/ [Concomitant]
  14. ASPIRIN [Concomitant]
     Dosage: 81 MG, UNK
  15. TRIAMTERENE AND HYDROCHLOROTHIAZIDE [Concomitant]
     Dosage: UNK
  16. SYNTHROID [Concomitant]
     Dosage: 25 MUG, UNK

REACTIONS (1)
  - DIZZINESS [None]
